FAERS Safety Report 12866421 (Version 1)
Quarter: 2016Q4

REPORT INFORMATION
  Report Type: Spontaneous
  Country: US (occurrence: US)
  Receive Date: 20161020
  Receipt Date: 20161020
  Transmission Date: 20170207
  Serious: No
  Sender: FDA-Public Use
  Company Number: US-SA-2016SA103153

PATIENT
  Age: 43 Year
  Sex: Male

DRUGS (8)
  1. HYDROCODONE W/ACETAMINOPHEN [Concomitant]
     Active Substance: ACETAMINOPHEN\HYDROCODONE BITARTRATE
  2. VITAMINS NOS [Concomitant]
     Active Substance: VITAMINS
  3. LAMOTRIGINE. [Concomitant]
     Active Substance: LAMOTRIGINE
  4. FISH OIL [Concomitant]
     Active Substance: FISH OIL
  5. DIAZEPAM. [Concomitant]
     Active Substance: DIAZEPAM
  6. BUPROPION HYDROCHLORIDE. [Concomitant]
     Active Substance: BUPROPION HYDROCHLORIDE
  7. VITAMIN D3 [Concomitant]
     Active Substance: CHOLECALCIFEROL
  8. AUBAGIO [Suspect]
     Active Substance: TERIFLUNOMIDE
     Indication: MULTIPLE SCLEROSIS
     Route: 048

REACTIONS (1)
  - Nausea [Unknown]
